FAERS Safety Report 17182350 (Version 2)
Quarter: 2019Q4

REPORT INFORMATION
  Report Type: Spontaneous
  Country: EG (occurrence: EG)
  Receive Date: 20191219
  Receipt Date: 20191231
  Transmission Date: 20200122
  Serious: Yes (Hospitalization, Disabling, Other)
  Sender: FDA-Public Use
  Company Number: EG-NOVOPROD-702056

PATIENT
  Age: 67 Year
  Sex: Female
  Weight: 110 kg

DRUGS (5)
  1. NEUROBION [CYANOCOBALAMIN;PYRIDOXINE;THIAMINE] [Concomitant]
     Dosage: UNK
     Route: 048
  2. ACTRAPID [Suspect]
     Active Substance: INSULIN HUMAN
     Indication: DIABETES MELLITUS
     Dosage: 26 IU, TID
     Route: 058
  3. INSULATARD NPH HUMAN [Suspect]
     Active Substance: INSULIN HUMAN
     Indication: DIABETES MELLITUS
     Dosage: 20 IU, BID
     Route: 058
  4. NITROMACK [Concomitant]
     Dosage: UNK
  5. BILICHOL [Concomitant]
     Indication: CHOLELITHIASIS
     Dosage: TWICE DAILY STARTED 2 YEARS AGO
     Route: 048

REACTIONS (2)
  - Leg amputation [Not Recovered/Not Resolved]
  - Lower limb fracture [Not Recovered/Not Resolved]
